FAERS Safety Report 9280837 (Version 2)
Quarter: 2013Q2

REPORT INFORMATION
  Report Type: Spontaneous
  Country: IT (occurrence: IT)
  Receive Date: 20130509
  Receipt Date: 20130613
  Transmission Date: 20140414
  Serious: Yes (Hospitalization, Other)
  Sender: FDA-Public Use
  Company Number: IT-BRISTOL-MYERS SQUIBB COMPANY-18860510

PATIENT
  Age: 70 Year
  Sex: Female

DRUGS (6)
  1. COUMADIN TABS 5 MG [Suspect]
     Indication: ATRIAL FIBRILLATION
     Dosage: 1DF:1 UNIT
     Route: 048
     Dates: start: 20110901, end: 20130427
  2. LAMOTRIGINE [Concomitant]
     Indication: EPILEPSY
     Route: 048
  3. BISOPROLOL HEMIFUMARATE [Concomitant]
     Route: 048
  4. CYANOCOBALAMIN [Concomitant]
  5. RAMIPRIL [Concomitant]
     Indication: HYPERTENSION
     Route: 048
  6. FOLINA [Concomitant]
     Dosage: CAPS

REACTIONS (2)
  - Cerebral haemorrhage [Recovering/Resolving]
  - Face injury [Unknown]
